FAERS Safety Report 9850802 (Version 2)
Quarter: 2014Q1

REPORT INFORMATION
  Report Type: Report from Study
  Country: US (occurrence: US)
  Receive Date: 20140128
  Receipt Date: 20140318
  Transmission Date: 20141002
  Serious: Yes (Other)
  Sender: FDA-Public Use
  Company Number: US-ABBVIE-14P-163-1192054-00

PATIENT
  Age: 52 Year
  Sex: Female
  Weight: 95.79 kg

DRUGS (16)
  1. HUMIRA [Suspect]
     Indication: CROHN^S DISEASE
     Route: 058
     Dates: start: 2011
  2. HUMIRA [Suspect]
     Route: 058
  3. HUMIRA [Suspect]
     Route: 058
  4. VICODIN [Suspect]
     Indication: PAIN
  5. GABAPENTIN [Suspect]
     Indication: MUSCLE SPASMS
  6. PENTASA [Concomitant]
     Indication: CROHN^S DISEASE
     Route: 048
  7. SINGULAIR [Concomitant]
     Indication: ASTHMA
  8. ADVAIR [Concomitant]
     Indication: ASTHMA
     Dosage: DISKUS 100-50 MCG/DOSE
  9. ADVAIR [Concomitant]
     Dosage: INHALER 250/50
  10. VENTOLIN [Concomitant]
     Indication: ASTHMA
     Dosage: INHALER TWICE DAILY OR AS NEEDED
  11. ZOFRAN [Concomitant]
     Indication: NAUSEA
  12. OMEPRAXZOLE [Concomitant]
     Indication: GASTROOESOPHAGEAL REFLUX DISEASE
     Route: 048
  13. ONDANSETRON HCL [Concomitant]
     Indication: NAUSEA
     Dosage: PILL
  14. HYOSCYAMINE SULFATE [Concomitant]
     Indication: PRODUCT USED FOR UNKNOWN INDICATION
  15. VENTOLIN HFA [Concomitant]
     Indication: PRODUCT USED FOR UNKNOWN INDICATION
     Dosage: 108 (90 BASE) MCG/ACT
  16. OXYCODONE HCL [Concomitant]
     Indication: PRODUCT USED FOR UNKNOWN INDICATION

REACTIONS (24)
  - Autoimmune hepatitis [Not Recovered/Not Resolved]
  - Hepatic cirrhosis [Not Recovered/Not Resolved]
  - Wrong technique in drug usage process [Recovered/Resolved]
  - Injection site haemorrhage [Recovered/Resolved]
  - Crohn^s disease [Recovering/Resolving]
  - Abdominal pain upper [Recovering/Resolving]
  - Abdominal pain [Recovering/Resolving]
  - Hepatic enzyme increased [Unknown]
  - Hepatic steatosis [Not Recovered/Not Resolved]
  - Injection site bruising [Recovered/Resolved]
  - Abdominal pain upper [Not Recovered/Not Resolved]
  - Diarrhoea [Not Recovered/Not Resolved]
  - Rectal haemorrhage [Not Recovered/Not Resolved]
  - Drug dose omission [Not Recovered/Not Resolved]
  - Crohn^s disease [Not Recovered/Not Resolved]
  - Enteritis [Not Recovered/Not Resolved]
  - Hepatic neoplasm [Not Recovered/Not Resolved]
  - Portal vein dilatation [Not Recovered/Not Resolved]
  - Portal hypertension [Not Recovered/Not Resolved]
  - Antinuclear antibody positive [Not Recovered/Not Resolved]
  - Blood iron decreased [Not Recovered/Not Resolved]
  - Gastritis [Unknown]
  - Gastrooesophageal reflux disease [Unknown]
  - Hiatus hernia [Unknown]
